FAERS Safety Report 9248812 (Version 1)
Quarter: 2013Q1

REPORT INFORMATION
  Report Type: Spontaneous
  Country: US (occurrence: None)
  Receive Date: 20130305
  Receipt Date: 20130305
  Transmission Date: 20140127
  Serious: Yes (Other)
  Sender: FDA-Public Use
  Company Number: 163-21880-12101312

PATIENT
  Age: 78 Year
  Sex: Female

DRUGS (4)
  1. REVLIMID [Suspect]
     Indication: MYELODYSPLASTIC SYNDROME
     Dosage: 10 MG, 28 IN 28 D, PO
     Dates: start: 20120917
  2. CLOPIDOGREL BISULFATE [Concomitant]
  3. FUROSEMIDE (FUROSEMIDE) [Concomitant]
  4. NITROSTAT [Concomitant]

REACTIONS (1)
  - Blindness transient [None]
